FAERS Safety Report 17089115 (Version 1)
Quarter: 2019Q4

REPORT INFORMATION
  Report Type: Spontaneous
  Country: US (occurrence: US)
  Receive Date: 20191128
  Receipt Date: 20191128
  Transmission Date: 20200122
  Serious: No
  Sender: FDA-Public Use
  Company Number: NVSC2019US046161

PATIENT
  Sex: Female

DRUGS (1)
  1. SANDOSTATIN LAR DEPOT [Suspect]
     Active Substance: OCTREOTIDE ACETATE
     Indication: PRODUCT USED FOR UNKNOWN INDICATION
     Dosage: 30 MG
     Route: 065
     Dates: start: 2017

REACTIONS (14)
  - Anxiety [Unknown]
  - Feeling abnormal [Unknown]
  - Malaise [Unknown]
  - Injection site pain [Unknown]
  - Back pain [Unknown]
  - Crying [Unknown]
  - Depression [Unknown]
  - Incorrect route of product administration [Unknown]
  - Headache [Unknown]
  - Anger [Unknown]
  - Somnolence [Unknown]
  - Diarrhoea [Unknown]
  - Injection site injury [Unknown]
  - Vomiting [Unknown]
